FAERS Safety Report 21609931 (Version 1)
Quarter: 2022Q4

REPORT INFORMATION
  Report Type: Report from Study
  Country: US (occurrence: US)
  Receive Date: 20221117
  Receipt Date: 20221117
  Transmission Date: 20230112
  Serious: Yes (Hospitalization)
  Sender: FDA-Public Use
  Company Number: US-ABBVIE-4140489

PATIENT
  Sex: Male
  Weight: 82.7 kg

DRUGS (5)
  1. IBRUTINIB [Suspect]
     Active Substance: IBRUTINIB
     Indication: Chronic lymphocytic leukaemia
     Route: 048
     Dates: start: 20220404, end: 20220831
  2. IBRUTINIB [Suspect]
     Active Substance: IBRUTINIB
     Indication: Chronic lymphocytic leukaemia
     Dosage: ONGOING
     Dates: start: 20220906
  3. OBINUTUZUMAB [Concomitant]
     Active Substance: OBINUTUZUMAB
     Indication: Chronic lymphocytic leukaemia
     Dosage: TIME INTERVAL: CYCLICAL: C1D1
     Route: 042
     Dates: start: 20220404
  4. OBINUTUZUMAB [Concomitant]
     Active Substance: OBINUTUZUMAB
     Indication: Chronic lymphocytic leukaemia
     Dosage: TIME INTERVAL: CYCLICAL: C1D2
     Route: 042
  5. OBINUTUZUMAB [Concomitant]
     Active Substance: OBINUTUZUMAB
     Indication: Chronic lymphocytic leukaemia
     Dosage: TIME INTERVAL: CYCLICAL: C1D8 + C1D15, C2-6D1
     Route: 042
     Dates: end: 20220725

REACTIONS (2)
  - Febrile neutropenia [Recovered/Resolved]
  - Pneumonia [Recovered/Resolved]

NARRATIVE: CASE EVENT DATE: 20220831
